FAERS Safety Report 20762285 (Version 1)
Quarter: 2022Q2

REPORT INFORMATION
  Report Type: Spontaneous
  Country: GB (occurrence: GB)
  Receive Date: 20220428
  Receipt Date: 20220428
  Transmission Date: 20220721
  Serious: Yes (Life-Threatening, Disabling, Other)
  Sender: FDA-Public Use
  Company Number: GB-MHRA-MED-202204191922514840-QWKI1

PATIENT
  Sex: Male

DRUGS (1)
  1. SERTRALINE [Suspect]
     Active Substance: SERTRALINE HYDROCHLORIDE
     Indication: Delayed sleep phase
     Dosage: UNK(50MG, REDUCED TO 25MG AFTER 4 DAYS)
     Dates: start: 20220213, end: 20220226

REACTIONS (9)
  - Genital hypoaesthesia [Not Recovered/Not Resolved]
  - Lacrimation decreased [Not Recovered/Not Resolved]
  - Infrequent bowel movements [Not Recovered/Not Resolved]
  - Orgasmic sensation decreased [Not Recovered/Not Resolved]
  - Testicular disorder [Not Recovered/Not Resolved]
  - Peripheral coldness [Not Recovered/Not Resolved]
  - Hypoaesthesia [Not Recovered/Not Resolved]
  - Erectile dysfunction [Not Recovered/Not Resolved]
  - Ejaculation failure [Not Recovered/Not Resolved]
